FAERS Safety Report 26134918 (Version 1)
Quarter: 2025Q4

REPORT INFORMATION
  Report Type: Spontaneous
  Country: US (occurrence: US)
  Receive Date: 20251209
  Receipt Date: 20251209
  Transmission Date: 20260117
  Serious: Yes (Other)
  Sender: TEVA
  Company Number: US-TEVA-VS-3399789

PATIENT
  Age: 57 Year
  Sex: Female

DRUGS (7)
  1. TRETINOIN [Suspect]
     Active Substance: TRETINOIN
     Indication: Acute promyelocytic leukaemia
     Dosage: AS A PART OF CONSOLIDATION THERAPY
     Route: 065
  2. TRETINOIN [Suspect]
     Active Substance: TRETINOIN
     Indication: Acute promyelocytic leukaemia
     Dosage: AS A PART OF INDUCTION THERAPY
     Route: 065
  3. TRETINOIN [Suspect]
     Active Substance: TRETINOIN
     Indication: Acute promyelocytic leukaemia
     Dosage: AS A PART OF MAINTENANCE THERAPY
     Route: 065
  4. MERCAPTOPURINE [Suspect]
     Active Substance: MERCAPTOPURINE
     Indication: Acute promyelocytic leukaemia
     Dosage: AS A PART OF MAINTENANCE THERAPY
     Route: 065
  5. METHOTREXATE [Suspect]
     Active Substance: METHOTREXATE
     Indication: Acute promyelocytic leukaemia
     Dosage: AS A PART OF MAINTENANCE THERAPY
     Route: 065
  6. IDARUBICIN [Suspect]
     Active Substance: IDARUBICIN
     Indication: Acute promyelocytic leukaemia
     Dosage: AS A PART OF INDUCTION THERAPY
     Route: 065
  7. IDARUBICIN [Suspect]
     Active Substance: IDARUBICIN
     Indication: Acute promyelocytic leukaemia
     Dosage: AS A PART OF CONSOLIDATION THERAPY
     Route: 065

REACTIONS (1)
  - Myelodysplastic syndrome with excess blasts [Recovering/Resolving]
